FAERS Safety Report 25505905 (Version 3)
Quarter: 2025Q4

REPORT INFORMATION
  Report Type: Report from Study
  Country: US (occurrence: US)
  Receive Date: 20250702
  Receipt Date: 20251215
  Transmission Date: 20260118
  Serious: Yes (Other)
  Sender: AMGEN
  Company Number: US-AMGEN-USASP2025126128

PATIENT
  Age: 71 Year
  Sex: Female

DRUGS (1)
  1. TEPEZZA [Suspect]
     Active Substance: TEPROTUMUMAB-TRBW
     Indication: Toxic goitre
     Dosage: UNK
     Route: 065
     Dates: start: 20240611, end: 20241101

REACTIONS (3)
  - Endocrine ophthalmopathy [Not Recovered/Not Resolved]
  - Blood thyroid stimulating hormone abnormal [Recovering/Resolving]
  - Fatigue [Unknown]
